FAERS Safety Report 7227661-6 (Version None)
Quarter: 2011Q1

REPORT INFORMATION
  Report Type: 
  Country: None (occurrence: None)
  Receive Date: 20110114
  Receipt Date: 20110110
  Transmission Date: 20110831
  Serious: No
  Sender: FDA-Public Use
  Company Number: US-PFIZER INC-2011006305

PATIENT
  Sex: Female
  Weight: 70.295 kg

DRUGS (4)
  1. VENLAFAXINE HCL [Suspect]
     Indication: GENERALISED ANXIETY DISORDER
     Dosage: 37.5 MG, 1X/DAY
     Route: 048
     Dates: start: 20101201, end: 20110107
  2. KLONOPIN [Concomitant]
     Dosage: 1 MG, AS NEEDED
     Dates: start: 20000101
  3. EFFEXOR [Suspect]
     Indication: GENERALISED ANXIETY DISORDER
     Dosage: UNK
     Dates: start: 20100101
  4. HYDROCODONE [Concomitant]
     Dosage: UNK, AS NEEDED
     Dates: start: 20000101

REACTIONS (2)
  - ASTHENIA [None]
  - HEADACHE [None]
